FAERS Safety Report 24428526 (Version 4)
Quarter: 2024Q4

REPORT INFORMATION
  Report Type: Report from Study
  Country: US (occurrence: US)
  Receive Date: 20241011
  Receipt Date: 20241213
  Transmission Date: 20250115
  Serious: Yes (Other)
  Sender: Pyros Pharmaceuticals
  Company Number: US-PYROS PHARMACEUTICALS, INC-2024-PYROS-US000065

PATIENT
  Age: 1 Year
  Sex: Female
  Weight: 12.299 kg

DRUGS (5)
  1. VIGAFYDE [Suspect]
     Active Substance: VIGABATRIN
     Indication: Infantile spasms
     Dosage: 250 MG, (2.5 ML), BID
     Route: 048
     Dates: start: 20240916, end: 202410
  2. VIGAFYDE [Suspect]
     Active Substance: VIGABATRIN
     Indication: Simple partial seizures
     Dosage: 300 MG (3 ML), BID
     Route: 048
     Dates: start: 202410, end: 20241017
  3. VIGAFYDE [Suspect]
     Active Substance: VIGABATRIN
     Dosage: 500 MG (5 ML), BID
     Route: 048
     Dates: start: 20241018, end: 20241028
  4. VIGAFYDE [Suspect]
     Active Substance: VIGABATRIN
     Dosage: 650 MG (6.5 ML), BID
     Route: 048
     Dates: start: 20241029
  5. MIRALAX [Concomitant]
     Active Substance: POLYETHYLENE GLYCOL 3350
     Indication: Constipation
     Dosage: UNK, PRN
     Route: 065
     Dates: start: 20240914

REACTIONS (8)
  - Dyspnoea [Recovered/Resolved]
  - Seizure [Recovered/Resolved]
  - Condition aggravated [Recovered/Resolved]
  - Drug ineffective [Recovered/Resolved]
  - Somnolence [Recovered/Resolved]
  - Irritability [Not Recovered/Not Resolved]
  - Dyskinesia [Recovered/Resolved]
  - Constipation [Not Recovered/Not Resolved]

NARRATIVE: CASE EVENT DATE: 20240901
